FAERS Safety Report 11154710 (Version 1)
Quarter: 2015Q2

REPORT INFORMATION
  Report Type: Spontaneous
  Country: US (occurrence: None)
  Receive Date: 20150529
  Receipt Date: 20150529
  Transmission Date: 20150821
  Serious: Yes (Hospitalization)
  Sender: FDA-Public Use
  Company Number: 1224850-2015-00027

PATIENT

DRUGS (4)
  1. PHOSLO [Suspect]
     Active Substance: CALCIUM ACETATE
     Indication: HYPERPHOSPHATAEMIA
     Route: 048
  2. FOSRENOL [Concomitant]
     Active Substance: LANTHANUM CARBONATE
  3. IRON [Concomitant]
     Active Substance: IRON
  4. UNSPECIFIED MEDICATION FOR CONSTIPATION [Concomitant]

REACTIONS (4)
  - Dehydration [None]
  - Vomiting [None]
  - Diarrhoea [None]
  - Influenza [None]

NARRATIVE: CASE EVENT DATE: 20091201
